FAERS Safety Report 6892340-1 (Version None)
Quarter: 2010Q3

REPORT INFORMATION
  Report Type: 
  Country: None (occurrence: None)
  Receive Date: 20100731
  Receipt Date: 20080410
  Transmission Date: 20110219
  Serious: No
  Sender: FDA-Public Use
  Company Number: US-PFIZER INC-2008032612

PATIENT
  Sex: Male
  Weight: 77.11 kg

DRUGS (4)
  1. NEURONTIN [Suspect]
     Indication: BIPOLAR DISORDER
     Dosage: DAILY
     Route: 048
     Dates: start: 20020101
  2. NEURONTIN [Suspect]
     Indication: SLEEP DISORDER
  3. LUNESTA [Concomitant]
     Route: 048
  4. DRUG, UNSPECIFIED [Concomitant]
     Route: 048

REACTIONS (2)
  - PAIN [None]
  - PERIPHERAL SENSORY NEUROPATHY [None]
